FAERS Safety Report 12944733 (Version 1)
Quarter: 2016Q4

REPORT INFORMATION
  Report Type: Spontaneous
  Country: US (occurrence: US)
  Receive Date: 20161115
  Receipt Date: 20161115
  Transmission Date: 20170207
  Serious: Yes (Hospitalization)
  Sender: FDA-Public Use
  Company Number: US-SA-2016SA202669

PATIENT
  Age: 48 Year
  Sex: Male

DRUGS (10)
  1. WARFARIN [Concomitant]
     Active Substance: WARFARIN
  2. TICAGRELOR [Concomitant]
     Active Substance: TICAGRELOR
  3. CLOPIDOGREL BISULFATE. [Suspect]
     Active Substance: CLOPIDOGREL BISULFATE
     Indication: ANTIPLATELET THERAPY
     Route: 065
  4. ASPIRIN. [Concomitant]
     Active Substance: ASPIRIN
  5. HEPARIN [Concomitant]
     Active Substance: HEPARIN SODIUM
     Dosage: DRIP DOSE:1000 UNIT(S)
  6. CLOPIDOGREL BISULFATE. [Suspect]
     Active Substance: CLOPIDOGREL BISULFATE
     Indication: ANTIPLATELET THERAPY
     Route: 065
  7. HEPARIN [Concomitant]
     Active Substance: HEPARIN SODIUM
     Dosage: DOSE:5000 UNIT(S)
  8. ASPIRIN. [Concomitant]
     Active Substance: ASPIRIN
  9. BIVALIRUDIN. [Concomitant]
     Active Substance: BIVALIRUDIN
  10. BIVALIRUDIN. [Concomitant]
     Active Substance: BIVALIRUDIN

REACTIONS (5)
  - Electrocardiogram ST segment elevation [Recovered/Resolved]
  - Drug ineffective [Unknown]
  - International normalised ratio decreased [Recovered/Resolved]
  - Chest pain [Recovered/Resolved]
  - Vascular stent thrombosis [Recovered/Resolved]
